FAERS Safety Report 9598429 (Version 1)
Quarter: 2013Q4

REPORT INFORMATION
  Report Type: Spontaneous
  Country: US (occurrence: US)
  Receive Date: 20131004
  Receipt Date: 20131004
  Transmission Date: 20140711
  Serious: No
  Sender: FDA-Public Use
  Company Number: US-AMGEN-USASP2013023621

PATIENT
  Age: 39 Year
  Sex: Female
  Weight: 55.78 kg

DRUGS (9)
  1. ENBREL [Suspect]
     Indication: PRODUCT USED FOR UNKNOWN INDICATION
     Dosage: 50 MG, QWK
     Route: 058
  2. PREDNISONE [Concomitant]
     Dosage: 5 MG, UNK
     Route: 048
  3. ZYRTEC [Concomitant]
     Dosage: 5 MG, UNK
     Route: 048
  4. NAPROXEN [Concomitant]
     Dosage: 500 MG, UNK
     Route: 048
  5. VITAMIN C                          /00008001/ [Concomitant]
     Dosage: 500 MG, UNK
     Route: 048
  6. LOSARTAN POTASSIUM [Concomitant]
     Dosage: 50 MG, UNK
     Route: 048
  7. VITAMIN D                          /00107901/ [Concomitant]
     Dosage: 1000 UNIT, UNK
     Route: 048
  8. MULTIVITAMINS, PLAIN [Concomitant]
     Dosage: UNK
     Route: 048
  9. PROBIOTIC                          /06395501/ [Concomitant]
     Dosage: UNK
     Route: 048

REACTIONS (1)
  - Injection site reaction [Unknown]
